FAERS Safety Report 7860085-7 (Version None)
Quarter: 2011Q4

REPORT INFORMATION
  Report Type: 
  Country: None (occurrence: None)
  Receive Date: 20111026
  Receipt Date: 20111011
  Transmission Date: 20120403
  Serious: Yes (Other)
  Sender: FDA-Public Use
  Company Number: FK201102296

PATIENT
  Age: 11 Year
  Sex: Male

DRUGS (5)
  1. CISPLATIN [Concomitant]
  2. MESNA [Suspect]
     Indication: PRIMITIVE NEUROECTODERMAL TUMOUR
     Dosage: 500 MG/M2, INTRAVENOUS (NOT OTHERWISE SPECIFIED) 1500 MG/M2, INTRAVENOUS (NOT OTHERWISE SPECIFIED)
     Route: 042
  3. CYCLOPHOSPHAMIDE [Concomitant]
  4. AMIFOSTINE [Suspect]
     Indication: PRIMITIVE NEUROECTODERMAL TUMOUR
     Dosage: 600 MG/M2
  5. VINCRISTINE [Concomitant]

REACTIONS (15)
  - SEPTIC SHOCK [None]
  - HYPERSENSITIVITY [None]
  - DRUG RASH WITH EOSINOPHILIA AND SYSTEMIC SYMPTOMS [None]
  - HYPOTENSION [None]
  - RENAL FAILURE ACUTE [None]
  - RASH MACULO-PAPULAR [None]
  - LEUKOPENIA [None]
  - ANGIOEDEMA [None]
  - RESPIRATORY FAILURE [None]
  - DISSEMINATED INTRAVASCULAR COAGULATION [None]
  - LEUKOCYTOSIS [None]
  - EOSINOPHILIA [None]
  - OLIGURIA [None]
  - HYPOXIA [None]
  - PYREXIA [None]
